FAERS Safety Report 4573472-X (Version None)
Quarter: 2005Q1

REPORT INFORMATION
  Report Type: 
  Country: None (occurrence: None)
  Receive Date: 20050208
  Receipt Date: 20040825
  Transmission Date: 20050727
  Serious: No
  Sender: FDA-Public Use
  Company Number: US-GLAXOSMITHKLINE-A0523461A

PATIENT
  Age: 61 Year
  Sex: Female

DRUGS (3)
  1. PAXIL [Suspect]
     Indication: DEPRESSION
     Dosage: 40MG PER DAY
     Route: 048
  2. KLONOPIN [Concomitant]
  3. SYNTHROID [Concomitant]

REACTIONS (5)
  - BURNING SENSATION [None]
  - ELECTRIC SHOCK [None]
  - INSOMNIA [None]
  - POLLAKIURIA [None]
  - TREMOR [None]
